FAERS Safety Report 7274635-5 (Version None)
Quarter: 2011Q1

REPORT INFORMATION
  Report Type: 
  Country: None (occurrence: None)
  Receive Date: 20110204
  Receipt Date: 20110126
  Transmission Date: 20110831
  Serious: Yes (Hospitalization)
  Sender: FDA-Public Use
  Company Number: GB-BRISTOL-MYERS SQUIBB COMPANY-15524150

PATIENT
  Sex: Male

DRUGS (1)
  1. PRAVASTATIN SODIUM [Suspect]

REACTIONS (2)
  - EPISTAXIS [None]
  - MUSCLE SPASMS [None]
